FAERS Safety Report 16249079 (Version 1)
Quarter: 2019Q2

REPORT INFORMATION
  Report Type: Spontaneous
  Country: US (occurrence: US)
  Receive Date: 20190429
  Receipt Date: 20190429
  Transmission Date: 20190711
  Serious: No
  Sender: FDA-Public Use
  Company Number: US-TEVA-2019-US-1039400

PATIENT
  Sex: Female

DRUGS (1)
  1. TOBRAMYCIN INHALATION SOLUTION, USP [Suspect]
     Active Substance: TOBRAMYCIN
     Route: 065

REACTIONS (2)
  - Ear pain [Unknown]
  - Ear discomfort [Unknown]

NARRATIVE: CASE EVENT DATE: 2019
